FAERS Safety Report 5631635-6 (Version None)
Quarter: 2008Q1

REPORT INFORMATION
  Report Type: 
  Country: None (occurrence: None)
  Receive Date: 20080213
  Receipt Date: 20080204
  Transmission Date: 20080703
  Serious: Yes (Death)
  Sender: FDA-Public Use
  Company Number: 2008-00935

PATIENT
  Age: 44 Year
  Sex: Female

DRUGS (13)
  1. HYDROXYZINE HYDROCHLORIDE [Suspect]
  2. BUSPIRONE HCL [Suspect]
  3. PENICILLIN G POTASSIUM [Suspect]
  4. CHLORDIAZEPOXIDE HYDROCHLORIDE [Suspect]
  5. BUPROPION HYDROCHLORIDE [Suspect]
  6. TRAZODONE HYDROCHLORIDE [Suspect]
  7. CHLORPROMAZINE HCL [Suspect]
  8. DULOXETINE() [Suspect]
  9. ETHANOL (ETHANOL) [Suspect]
  10. THYROID PREPARATION() [Suspect]
  11. LAMOTRIGINE [Suspect]
  12. ZIPRASIDONE HCL [Suspect]
  13. CYPROHEPTADINE HCL [Suspect]

REACTIONS (1)
  - CARDIO-RESPIRATORY ARREST [None]
